FAERS Safety Report 9678364 (Version 2)
Quarter: 2013Q4

REPORT INFORMATION
  Report Type: Spontaneous
  Country: JP (occurrence: JP)
  Receive Date: 20131108
  Receipt Date: 20131108
  Transmission Date: 20140711
  Serious: Yes (Hospitalization)
  Sender: FDA-Public Use
  Company Number: JP-BAYER-2013-089661

PATIENT
  Age: 70 Year
  Sex: Male

DRUGS (1)
  1. STIVARGA [Suspect]
     Indication: COLORECTAL CANCER
     Dosage: 160 MG, QD
     Route: 048
     Dates: start: 20130718

REACTIONS (4)
  - Pyrexia [None]
  - White blood cell count decreased [None]
  - Platelet count decreased [None]
  - Constipation [Recovered/Resolved]
